FAERS Safety Report 12802416 (Version 1)
Quarter: 2016Q4

REPORT INFORMATION
  Report Type: Spontaneous
  Country: US (occurrence: US)
  Receive Date: 20161003
  Receipt Date: 20161003
  Transmission Date: 20170207
  Serious: Yes (Hospitalization, Disabling, Other)
  Sender: FDA-Public Use
  Company Number: None

PATIENT
  Age: 58 Year
  Sex: Female
  Weight: 68.95 kg

DRUGS (10)
  1. METOPROLOL. [Concomitant]
     Active Substance: METOPROLOL
  2. CYCLOBENZAPRINE [Concomitant]
     Active Substance: CYCLOBENZAPRINE
  3. DIAZEPAM. [Concomitant]
     Active Substance: DIAZEPAM
  4. TRAMADOL. [Concomitant]
     Active Substance: TRAMADOL
  5. RECLAST [Suspect]
     Active Substance: ZOLEDRONIC ACID
     Indication: BONE DISORDER
     Dosage: RECLAST - 1 INJECTION - I TOOK ONLY 1 INJECTION I.V.
     Route: 042
     Dates: start: 20080829, end: 2009
  6. CALTRATE [Concomitant]
     Active Substance: CALCIUM CARBONATE
  7. SYNTHROID [Concomitant]
     Active Substance: LEVOTHYROXINE SODIUM
  8. IRBESARTAN. [Concomitant]
     Active Substance: IRBESARTAN
  9. CALCIUM [Concomitant]
     Active Substance: CALCIUM
  10. MELOXICAM. [Concomitant]
     Active Substance: MELOXICAM

REACTIONS (6)
  - Osteomalacia [None]
  - Pain in extremity [None]
  - Tooth fracture [None]
  - Device failure [None]
  - Gait disturbance [None]
  - Tooth discolouration [None]

NARRATIVE: CASE EVENT DATE: 20080229
